FAERS Safety Report 7940578-4 (Version None)
Quarter: 2011Q4

REPORT INFORMATION
  Report Type: 
  Country: None (occurrence: None)
  Receive Date: 20111128
  Receipt Date: 20111116
  Transmission Date: 20120403
  Serious: Yes (Hospitalization, Other)
  Sender: FDA-Public Use
  Company Number: DE-ELI_LILLY_AND_COMPANY-DE201110003858

PATIENT
  Sex: Female

DRUGS (9)
  1. INSUMAN BASAL [Concomitant]
  2. BYETTA [Suspect]
     Indication: TYPE 2 DIABETES MELLITUS
     Dosage: UNK, UNKNOWN
     Route: 058
     Dates: end: 20110801
  3. RAMIPRIL [Concomitant]
     Dosage: 5 MG, UNK
  4. MELNEURIN [Concomitant]
     Dosage: 25 MG, UNK
  5. METOPROLOL COMP [Concomitant]
  6. PRAVASTATIN [Concomitant]
     Dosage: 40 MG, UNK
  7. PERENTEROL                              /GFR/ [Concomitant]
  8. CITALOPRAM HYDROBROMIDE [Concomitant]
     Dosage: 20 MG, UNK
  9. METFORMIN [Concomitant]
     Dosage: 500 MG, UNK

REACTIONS (3)
  - PANCREATITIS [None]
  - DIARRHOEA [None]
  - OFF LABEL USE [None]
